FAERS Safety Report 4262450-6 (Version None)
Quarter: 2004Q1

REPORT INFORMATION
  Report Type: 
  Country: None (occurrence: None)
  Receive Date: 20040102
  Receipt Date: 20031212
  Transmission Date: 20041129
  Serious: Yes (Hospitalization)
  Sender: FDA-Public Use
  Company Number: PHRM2003FR03318

PATIENT
  Age: 52 Year
  Sex: Female
  Weight: 93 kg

DRUGS (7)
  1. ESIDRIX [Suspect]
     Dosage: 25 MG, QD
     Route: 048
     Dates: start: 20030815, end: 20030914
  2. CARDENSIEL [Suspect]
     Dosage: 1.25 MG, QD
     Route: 048
  3. IMOVANE [Concomitant]
     Dosage: 15 MG DAILY
     Route: 048
     Dates: start: 20030815, end: 20030920
  4. EFFEXOR [Concomitant]
     Dosage: 3 DF DAILY
     Route: 048
     Dates: start: 20030815, end: 20030927
  5. COVERSYL [Concomitant]
     Dosage: 1 MG, QD
     Route: 048
     Dates: start: 20030815
  6. LASILIX [Concomitant]
     Dosage: 40 MG DAILY
     Route: 048
     Dates: start: 20030815
  7. KARDEGIC [Concomitant]
     Dosage: 160 MG, QD
     Route: 048

REACTIONS (11)
  - BUNDLE BRANCH BLOCK LEFT [None]
  - CONGESTIVE CARDIOMYOPATHY [None]
  - COUGH [None]
  - DYSPNOEA [None]
  - FALL [None]
  - HEART RATE INCREASED [None]
  - HYPOTENSION [None]
  - MALAISE [None]
  - PAIN IN EXTREMITY [None]
  - PYREXIA [None]
  - VENTRICULAR HYPERTROPHY [None]
